FAERS Safety Report 5922102-0 (Version None)
Quarter: 2008Q4

REPORT INFORMATION
  Report Type: 
  Country: None (occurrence: None)
  Receive Date: 20081017
  Receipt Date: 20081007
  Transmission Date: 20090506
  Serious: Yes (Other)
  Sender: FDA-Public Use
  Company Number: BR-BAYER-200819085LA

PATIENT
  Sex: Female

DRUGS (1)
  1. YAZ [Suspect]
     Indication: OVARIAN CYST
     Route: 048
     Dates: start: 20080901

REACTIONS (6)
  - APATHY [None]
  - DYSGEUSIA [None]
  - FATIGUE [None]
  - MOOD ALTERED [None]
  - NAUSEA [None]
  - SOMNOLENCE [None]
